FAERS Safety Report 5464564-1 (Version None)
Quarter: 2007Q3

REPORT INFORMATION
  Report Type: 
  Country: None (occurrence: None)
  Receive Date: 20070921
  Receipt Date: 20070911
  Transmission Date: 20080115
  Serious: Yes (Life-Threatening, Hospitalization, Disabling)
  Sender: FDA-Public Use
  Company Number: HQWYE790209OCT06

PATIENT
  Sex: Female
  Weight: 83.54 kg

DRUGS (7)
  1. EFFEXOR XR [Suspect]
     Indication: DEPRESSION
     Route: 048
     Dates: start: 20060825
  2. LISINOPRIL [Concomitant]
     Indication: HYPERTENSION
     Route: 048
     Dates: start: 20060801
  3. LUNESTA [Concomitant]
     Indication: INSOMNIA
     Dosage: 3 MG PRN
     Route: 048
     Dates: start: 20060825
  4. POTASSIUM CHLORIDE [Concomitant]
     Indication: ELECTROLYTE SUBSTITUTION THERAPY
     Route: 048
     Dates: start: 20060801
  5. NITROGLYCERIN [Concomitant]
     Indication: CHEST PAIN
     Dosage: 1 TAB PRN
     Route: 060
     Dates: start: 20060801
  6. CRESTOR [Concomitant]
     Indication: HYPERCHOLESTEROLAEMIA
     Route: 048
     Dates: start: 20060201
  7. HYDROCHLOROTHIAZIDE [Concomitant]
     Indication: HYPERTENSION
     Route: 048
     Dates: start: 20060801

REACTIONS (3)
  - CONCUSSION [None]
  - INJURY [None]
  - ROAD TRAFFIC ACCIDENT [None]
